FAERS Safety Report 6279242-9 (Version None)
Quarter: 2009Q3

REPORT INFORMATION
  Report Type: 
  Country: None (occurrence: None)
  Receive Date: 20090720
  Receipt Date: 20090720
  Transmission Date: 20100115
  Serious: Yes (Hospitalization)
  Sender: FDA-Public Use
  Company Number: None

PATIENT
  Age: 60 Year
  Sex: Male
  Weight: 104 kg

DRUGS (2)
  1. SIROLIMUS 1MG WYETH-AYERST LABORATORIES [Suspect]
     Indication: IMMUNOSUPPRESSANT DRUG THERAPY
     Dosage: 3MG QDAY PO
     Route: 048
     Dates: start: 20080501, end: 20090701
  2. SIROLIMUS 1MG WYETH-AYERST LABORATORIES [Suspect]
     Indication: RENAL TRANSPLANT
     Dosage: 3MG QDAY PO
     Route: 048
     Dates: start: 20080501, end: 20090701

REACTIONS (1)
  - PNEUMONITIS [None]
